FAERS Safety Report 18859672 (Version 1)
Quarter: 2021Q1

REPORT INFORMATION
  Report Type: Spontaneous
  Country: US (occurrence: US)
  Receive Date: 20210208
  Receipt Date: 20210208
  Transmission Date: 20210420
  Serious: Yes (Other)
  Sender: FDA-Public Use
  Company Number: None

PATIENT
  Age: 67 Year
  Sex: Male

DRUGS (2)
  1. FLUOROURACIL 5 TOPICAL CREAM [Suspect]
     Active Substance: FLUOROURACIL
     Indication: ACTINIC KERATOSIS
     Dosage: APPLY
     Route: 061
     Dates: start: 20201226, end: 20210105
  2. FLUOROURACIL. [Concomitant]
     Active Substance: FLUOROURACIL
     Dates: start: 20201230, end: 20210105

REACTIONS (3)
  - Polymyalgia rheumatica [None]
  - Myalgia [None]
  - Raynaud^s phenomenon [None]

NARRATIVE: CASE EVENT DATE: 20210101
